FAERS Safety Report 6664644-9 (Version None)
Quarter: 2010Q2

REPORT INFORMATION
  Report Type: 
  Country: None (occurrence: None)
  Receive Date: 20100401
  Receipt Date: 20100324
  Transmission Date: 20101027
  Serious: Yes (Death, Life-Threatening, Other)
  Sender: FDA-Public Use
  Company Number: TW-MILLENNIUM PHARMACEUTICALS, INC.-2010-01653

PATIENT

DRUGS (4)
  1. VELCADE [Suspect]
     Indication: MULTIPLE MYELOMA
     Dosage: 1.3 MG/M2, CYCLIC
     Dates: start: 20071101
  2. VELCADE [Suspect]
     Dosage: 0.7 MG/M2, CYCLIC
     Dates: start: 20080101
  3. VELCADE [Suspect]
     Dosage: 1.0 MG/M2, UNK
     Dates: start: 20080601
  4. DEXAMETHASONE [Concomitant]
     Indication: MULTIPLE MYELOMA
     Dosage: 20 MG, CYCLIC
     Route: 042
     Dates: start: 20080601

REACTIONS (2)
  - CAPILLARY LEAK SYNDROME [None]
  - CARDIAC AMYLOIDOSIS [None]
